FAERS Safety Report 6713933-8 (Version None)
Quarter: 2010Q2

REPORT INFORMATION
  Report Type: 
  Country: None (occurrence: None)
  Receive Date: 20100506
  Receipt Date: 20100428
  Transmission Date: 20101027
  Serious: Yes (Other)
  Sender: FDA-Public Use
  Company Number: US-JNJCH-2010010304

PATIENT
  Sex: Female

DRUGS (1)
  1. LUBRIDERM [Suspect]
     Indication: DRUG USE FOR UNKNOWN INDICATION
     Dosage: TEXT:UNKNOWN
     Route: 061

REACTIONS (2)
  - HAEMORRHAGE [None]
  - RASH [None]
